FAERS Safety Report 12889223 (Version 1)
Quarter: 2016Q4

REPORT INFORMATION
  Report Type: Spontaneous
  Country: KR (occurrence: KR)
  Receive Date: 20161027
  Receipt Date: 20161027
  Transmission Date: 20170207
  Serious: Yes (Death)
  Sender: FDA-Public Use
  Company Number: KR-009507513-1610KOR013332

PATIENT
  Age: 62 Year
  Sex: Male

DRUGS (21)
  1. CISPLATIN. [Concomitant]
     Active Substance: CISPLATIN
     Indication: LUNG NEOPLASM MALIGNANT
     Dosage: 123 MG, ONCE
     Route: 042
     Dates: start: 20160302, end: 20160302
  2. DEX (DEXAMETHASONE SODIUM PHOSPHATE) [Concomitant]
     Indication: PROPHYLAXIS OF NAUSEA AND VOMITING
     Dosage: 4 MG, QD
     Route: 042
     Dates: start: 20160226, end: 20160313
  3. UNASYN [Concomitant]
     Active Substance: AMPICILLIN SODIUM\SULBACTAM SODIUM
     Indication: INFECTION PROPHYLAXIS
     Dosage: 3000 MG, ONCE DAILY
     Route: 042
     Dates: start: 20160219, end: 20160303
  4. MACPERAN [Concomitant]
     Active Substance: METOCLOPRAMIDE HYDROCHLORIDE
     Indication: PROPHYLAXIS OF NAUSEA AND VOMITING
     Dosage: 10 MG, ONCE DAILY
     Route: 042
     Dates: start: 20160302, end: 20160309
  5. POTASSIUM CHLORIDE DAIHAN [Concomitant]
     Indication: PROPHYLAXIS
     Dosage: 2000 MG, ONCE
     Route: 042
     Dates: start: 20160302, end: 20160302
  6. GEMCITABINE HYDROCHLORIDE. [Concomitant]
     Active Substance: GEMCITABINE HYDROCHLORIDE
     Dosage: 2062 MG, ONCE
     Route: 042
     Dates: start: 20160309, end: 20160309
  7. ALOXI [Concomitant]
     Active Substance: PALONOSETRON HYDROCHLORIDE
     Indication: PROPHYLAXIS OF NAUSEA AND VOMITING
     Dosage: 0.25 MG, ONCE
     Route: 042
     Dates: start: 20160302, end: 20160302
  8. LASIX [Concomitant]
     Active Substance: FUROSEMIDE
     Indication: PROPHYLAXIS
     Dosage: 20 MG, ONCE
     Route: 042
     Dates: start: 20160302, end: 20160302
  9. GEMCITABINE HYDROCHLORIDE. [Concomitant]
     Active Substance: GEMCITABINE HYDROCHLORIDE
     Indication: LUNG NEOPLASM MALIGNANT
     Dosage: 2062 MG, ONCE
     Route: 042
     Dates: start: 20160302, end: 20160302
  10. MUTERAN [Concomitant]
     Active Substance: ACETYLCYSTEINE
     Indication: PROPHYLAXIS
     Dosage: 200 MG, TID
     Route: 048
     Dates: start: 20160223, end: 20160312
  11. CURAN [Concomitant]
     Active Substance: RANITIDINE HYDROCHLORIDE
     Indication: PROPHYLAXIS AGAINST GASTROINTESTINAL ULCER
     Dosage: 75 MG, BID
     Route: 048
     Dates: start: 20160308, end: 20160312
  12. EMEND (FOSAPREPITANT DIMEGLUMINE) [Suspect]
     Active Substance: FOSAPREPITANT DIMEGLUMINE
     Indication: PROPHYLAXIS OF NAUSEA AND VOMITING
     Dosage: 150 MG, ONCE
     Route: 042
     Dates: start: 20160302, end: 20160302
  13. PAMIDRONATE DISODIUM. [Concomitant]
     Active Substance: PAMIDRONATE DISODIUM
     Indication: OSTEOPOROSIS PROPHYLAXIS
     Dosage: 60 MG, ONCE
     Route: 042
     Dates: start: 20160226, end: 20160226
  14. PLAKON [Concomitant]
     Indication: PROPHYLAXIS OF NAUSEA AND VOMITING
     Dosage: 1.5 MG, ONCE DAILY
     Route: 042
     Dates: start: 20160302, end: 20160309
  15. MAGNESIUM SULFATE. [Concomitant]
     Active Substance: MAGNESIUM SULFATE
     Indication: PROPHYLAXIS
     Dosage: 2 G, ONCE
     Route: 042
     Dates: start: 20160302, end: 20160302
  16. NEO MEDICOUGH [Concomitant]
     Indication: PROPHYLAXIS
     Dosage: 1 TABLET, TID
     Route: 048
     Dates: start: 20160304, end: 20160307
  17. DIFLUCAN [Concomitant]
     Active Substance: FLUCONAZOLE
     Indication: INFECTION PROPHYLAXIS
     Dosage: 50 MG, ONCE DAILY
     Route: 048
     Dates: start: 20160308, end: 20160312
  18. ADIPAM [Concomitant]
     Indication: PROPHYLAXIS
     Dosage: 20 MG, ONCE
     Route: 048
     Dates: start: 20160301, end: 20160301
  19. DAEWON ES [Concomitant]
     Indication: PROPHYLAXIS
     Dosage: 5 ML, ONCE DAILY
     Route: 048
     Dates: start: 20160222, end: 20160312
  20. DONG A GASTER [Concomitant]
     Indication: PROPHYLAXIS
     Dosage: 20 MG, TID
     Route: 042
     Dates: start: 20160224, end: 20160303
  21. MACPERAN [Concomitant]
     Active Substance: METOCLOPRAMIDE HYDROCHLORIDE
     Indication: PROPHYLAXIS OF NAUSEA AND VOMITING
     Dosage: 5 MG, ONCE DAILY
     Route: 048
     Dates: start: 20160303, end: 20160307

REACTIONS (1)
  - Platelet count decreased [Fatal]

NARRATIVE: CASE EVENT DATE: 20160310
